FAERS Safety Report 5136290-X (Version None)
Quarter: 2006Q4

REPORT INFORMATION
  Report Type: 
  Country: None (occurrence: None)
  Receive Date: 20061027
  Receipt Date: 20061025
  Transmission Date: 20070319
  Serious: Yes (Other)
  Sender: FDA-Public Use
  Company Number: US-GLAXOSMITHKLINE-A0624898A

PATIENT
  Age: 64 Year
  Sex: Female

DRUGS (5)
  1. ADVAIR HFA [Suspect]
     Indication: ASTHMA
     Dosage: 1PUFF TWICE PER DAY
     Route: 055
  2. ZOLOFT [Concomitant]
  3. MULTI-VITAMIN [Concomitant]
  4. B VITAMIN [Concomitant]
  5. NEXIUM [Concomitant]

REACTIONS (3)
  - CHEST PAIN [None]
  - GASTRIC ULCER [None]
  - NAUSEA [None]
